FAERS Safety Report 5792261-1 (Version None)
Quarter: 2008Q2

REPORT INFORMATION
  Report Type: 
  Country: None (occurrence: None)
  Receive Date: 20080625
  Receipt Date: 20080327
  Transmission Date: 20081010
  Serious: Yes (Other)
  Sender: FDA-Public Use
  Company Number: US-WYE-H02761808

PATIENT
  Age: 81 Year
  Sex: Female
  Weight: 54.03 kg

DRUGS (7)
  1. TORISEL [Suspect]
     Indication: RENAL CELL CARCINOMA
     Dosage: 25 MG 1X PER 1 WK, INTRAVENOUS
     Route: 042
     Dates: start: 20080215, end: 20080215
  2. ALBUTEROL [Concomitant]
  3. ASPIRIN [Concomitant]
  4. FORADIL [Concomitant]
  5. LASIX [Concomitant]
  6. PEPCID [Concomitant]
  7. MORPHINE [Concomitant]

REACTIONS (2)
  - FACE OEDEMA [None]
  - PARAESTHESIA ORAL [None]
